FAERS Safety Report 6278792-9 (Version None)
Quarter: 2009Q3

REPORT INFORMATION
  Report Type: 
  Country: None (occurrence: None)
  Receive Date: 20090723
  Receipt Date: 20090714
  Transmission Date: 20100115
  Serious: Yes (Other)
  Sender: FDA-Public Use
  Company Number: US-BIOGENIDEC-2009BI010351

PATIENT
  Age: 52 Year
  Sex: Female

DRUGS (2)
  1. TYSABRI [Suspect]
     Indication: MULTIPLE SCLEROSIS
     Route: 042
     Dates: start: 20080306, end: 20090224
  2. LANTUS [Concomitant]
     Indication: TYPE 2 DIABETES MELLITUS

REACTIONS (8)
  - CONFUSIONAL STATE [None]
  - DESMOID TUMOUR [None]
  - FUNGAL SKIN INFECTION [None]
  - GASTROOESOPHAGEAL REFLUX DISEASE [None]
  - HYPERCHOLESTEROLAEMIA [None]
  - HYPERTENSION [None]
  - HYPERTRIGLYCERIDAEMIA [None]
  - HYPOGLYCAEMIA [None]
